FAERS Safety Report 14440664 (Version 1)
Quarter: 2018Q1

REPORT INFORMATION
  Report Type: Spontaneous
  Country: FR (occurrence: FR)
  Receive Date: 20180125
  Receipt Date: 20180125
  Transmission Date: 20180509
  Serious: Yes (Life-Threatening)
  Sender: FDA-Public Use
  Company Number: FR-009507513-1801FRA008331

PATIENT
  Age: 59 Year
  Sex: Female
  Weight: 60 kg

DRUGS (9)
  1. ZOPICLONE [Concomitant]
     Active Substance: ZOPICLONE
     Indication: SLEEP DISORDER
     Dosage: 7.5 MG, QD
     Route: 048
     Dates: start: 20171220, end: 20180101
  2. ACETAMINOPHEN. [Concomitant]
     Active Substance: ACETAMINOPHEN
     Indication: NEURALGIA
     Dosage: 3 G, QD
     Route: 048
     Dates: start: 20171123
  3. ACTISKENAN [Concomitant]
     Active Substance: MORPHINE SULFATE
     Indication: NEURALGIA
     Dosage: 5 MG, UNK
     Route: 048
     Dates: start: 20171124
  4. PREGABALIN. [Concomitant]
     Active Substance: PREGABALIN
     Indication: NEURALGIA
     Dosage: 325 MG, QD
     Route: 048
     Dates: start: 20171127
  5. BI-PROFENID [Suspect]
     Active Substance: KETOPROFEN
     Indication: NEURALGIA
     Dosage: 200 MG, QD (SCORED TABLETS)
     Route: 048
     Dates: start: 20171116, end: 20180101
  6. NEFOPAM [Concomitant]
     Active Substance: NEFOPAM
     Indication: NEURALGIA
     Dosage: 60 MG, QD
     Route: 048
     Dates: start: 20171123
  7. KEYTRUDA [Suspect]
     Active Substance: PEMBROLIZUMAB
     Indication: BRONCHIAL CARCINOMA
     Dosage: 1 DF, UNK
     Route: 041
     Dates: start: 20171227
  8. INEXIUM (ESOMEPRAZOLE MAGNESIUM) [Concomitant]
     Active Substance: ESOMEPRAZOLE MAGNESIUM
     Indication: PROPHYLAXIS AGAINST GASTROINTESTINAL ULCER
     Dosage: 20 MG, QD (GASTRO-RESISTANT TABLET)
     Route: 048
     Dates: start: 20171116
  9. SKENAN [Concomitant]
     Active Substance: MORPHINE SULFATE
     Indication: NEURALGIA
     Dosage: 40 MG, QD (PROLONGED-RELEASE MICROGRANULES IN CAPSULEPROLONGED-RELEASE MICROGRANULES IN CAPSULE)
     Route: 048
     Dates: start: 20171123

REACTIONS (1)
  - Acute kidney injury [Not Recovered/Not Resolved]

NARRATIVE: CASE EVENT DATE: 20180101
